FAERS Safety Report 20097940 (Version 1)
Quarter: 2021Q4

REPORT INFORMATION
  Report Type: Spontaneous
  Country: US (occurrence: US)
  Receive Date: 20211122
  Receipt Date: 20211122
  Transmission Date: 20220303
  Serious: No
  Sender: FDA-Public Use
  Company Number: US-CELGENE-USA-20211104251

PATIENT
  Sex: Female
  Weight: 58.112 kg

DRUGS (13)
  1. REVLIMID [Suspect]
     Active Substance: LENALIDOMIDE
     Indication: Plasma cell myeloma
     Dosage: 20 MILLIGRAM
     Route: 048
     Dates: start: 202106
  2. REVLIMID [Suspect]
     Active Substance: LENALIDOMIDE
     Dosage: 20 MILLIGRAM
     Route: 048
     Dates: start: 202107
  3. REVLIMID [Suspect]
     Active Substance: LENALIDOMIDE
     Dosage: 15 MILLIGRAM
     Route: 048
     Dates: start: 202108
  4. PR [Concomitant]
     Active Substance: MENTHOL
     Indication: Product used for unknown indication
     Route: 065
  5. SY [Concomitant]
     Indication: Product used for unknown indication
     Dosage: 0.3-0.4 %
     Route: 065
  6. CE [Concomitant]
     Indication: Product used for unknown indication
     Route: 065
  7. ZO A [Concomitant]
     Indication: Product used for unknown indication
     Dosage: 4MG/5MG
     Route: 065
  8. UNSPECIFIED INGREDIENT [Concomitant]
     Active Substance: UNSPECIFIED INGREDIENT
     Indication: Product used for unknown indication
     Route: 065
  9. VE [Concomitant]
     Indication: Product used for unknown indication
     Route: 065
  10. Sulfam-Trim [Concomitant]
     Indication: Product used for unknown indication
     Route: 065
  11. ACY [Concomitant]
     Indication: Product used for unknown indication
     Route: 065
  12. LOR [Concomitant]
     Indication: Product used for unknown indication
     Route: 065
  13. ZY [Concomitant]
     Indication: Product used for unknown indication
     Route: 065

REACTIONS (1)
  - Insomnia [Unknown]
